FAERS Safety Report 19588686 (Version 1)
Quarter: 2021Q3

REPORT INFORMATION
  Report Type: Spontaneous
  Country: US (occurrence: US)
  Receive Date: 20210721
  Receipt Date: 20210721
  Transmission Date: 20211014
  Serious: Yes (Life-Threatening)
  Sender: FDA-Public Use
  Company Number: None

PATIENT
  Age: 43 Year
  Sex: Female
  Weight: 92.7 kg

DRUGS (6)
  1. TYLENOL [Concomitant]
     Active Substance: ACETAMINOPHEN
  2. TRAMADOL. [Suspect]
     Active Substance: TRAMADOL
     Indication: PAIN
     Dosage: ?          QUANTITY:15 TABLET(S);?
     Route: 048
     Dates: start: 20210718, end: 20210720
  3. RISPERIDONE. [Concomitant]
     Active Substance: RISPERIDONE
  4. METHOCARBAMOL. [Suspect]
     Active Substance: METHOCARBAMOL
  5. CLONAZEPAM. [Concomitant]
     Active Substance: CLONAZEPAM
  6. PRILOCAIN/LIDOCAINE [Concomitant]

REACTIONS (1)
  - Cardiac disorder [None]

NARRATIVE: CASE EVENT DATE: 20210720
